FAERS Safety Report 8606292-7 (Version None)
Quarter: 2012Q3

REPORT INFORMATION
  Report Type: 
  Country: None (occurrence: None)
  Receive Date: 20120820
  Receipt Date: 20120816
  Transmission Date: 20120928
  Serious: Yes (Death)
  Sender: FDA-Public Use
  Company Number: MA-ROCHE-1103150

PATIENT
  Sex: Female
  Weight: 35 kg

DRUGS (5)
  1. FLUOROURACIL [Concomitant]
     Indication: COLORECTAL CANCER
     Route: 042
     Dates: start: 20090825, end: 20100526
  2. ONSETRON [Concomitant]
     Indication: VOMITING
     Route: 042
     Dates: start: 20090825, end: 20100526
  3. AVASTIN [Suspect]
     Indication: COLORECTAL CANCER
     Route: 042
     Dates: start: 20090827, end: 20100526
  4. LEUCOVORIN CALCIUM [Concomitant]
     Indication: COLORECTAL CANCER
     Route: 042
     Dates: start: 20090825, end: 20100526
  5. IRINOTECAN HYDROCHLORIDE [Concomitant]
     Indication: COLORECTAL CANCER
     Dates: start: 20090825, end: 20100526

REACTIONS (1)
  - DISEASE PROGRESSION [None]
